FAERS Safety Report 24808589 (Version 1)
Quarter: 2025Q1

REPORT INFORMATION
  Report Type: Spontaneous
  Country: US (occurrence: US)
  Receive Date: 20250106
  Receipt Date: 20250106
  Transmission Date: 20250408
  Serious: No
  Sender: SANDOZ
  Company Number: US-SANDOZ-SDZ2024US106416

PATIENT
  Sex: Female
  Weight: 35.1 kg

DRUGS (4)
  1. AZITHROMYCIN [Suspect]
     Active Substance: AZITHROMYCIN
     Indication: Pneumonia
     Route: 065
     Dates: start: 202108, end: 202110
  2. ETHAMBUTOL [Suspect]
     Active Substance: ETHAMBUTOL HYDROCHLORIDE
     Indication: Pneumonia
     Route: 065
     Dates: start: 202108, end: 202110
  3. RIFAMPIN [Suspect]
     Active Substance: RIFAMPIN
     Route: 065
  4. RIFAMPIN [Suspect]
     Active Substance: RIFAMPIN
     Indication: Pneumonia
     Route: 065
     Dates: start: 202102, end: 202106

REACTIONS (3)
  - Feeling abnormal [Unknown]
  - Nausea [Unknown]
  - Vomiting [Unknown]
